FAERS Safety Report 9481946 (Version 1)
Quarter: 2013Q3

REPORT INFORMATION
  Report Type: Spontaneous
  Country: US (occurrence: US)
  Receive Date: 20130828
  Receipt Date: 20130828
  Transmission Date: 20140515
  Serious: No
  Sender: FDA-Public Use
  Company Number: US-PFIZER INC-2013248289

PATIENT
  Age: 56 Year
  Sex: Female
  Weight: 50.79 kg

DRUGS (2)
  1. EFFEXOR [Suspect]
     Indication: DEPRESSION
     Dosage: UNK
  2. PAXIL [Suspect]
     Indication: DEPRESSION
     Dosage: UNK

REACTIONS (2)
  - Memory impairment [Unknown]
  - Somnolence [Recovered/Resolved]
